FAERS Safety Report 7979700-2 (Version None)
Quarter: 2011Q4

REPORT INFORMATION
  Report Type: 
  Country: None (occurrence: None)
  Receive Date: 20111214
  Receipt Date: 20111202
  Transmission Date: 20120403
  Serious: Yes (Other)
  Sender: FDA-Public Use
  Company Number: BR-ROCHE-729103

PATIENT
  Sex: Female
  Weight: 74 kg

DRUGS (14)
  1. MABTHERA [Suspect]
     Route: 042
  2. OMEPRAZOLE [Concomitant]
  3. MABTHERA [Suspect]
     Dosage: DOSE: 100MG/10 ML, FREQUENCY: 1000 MG IN EACH DOSE
     Route: 042
     Dates: start: 20100415, end: 20100501
  4. CYMBALTA [Concomitant]
  5. LEXOTAN [Concomitant]
  6. LEVOTHYROXINE SODIUM [Concomitant]
  7. FLANCOX [Concomitant]
  8. METHOTREXATE [Concomitant]
  9. MABTHERA [Suspect]
     Route: 042
  10. CARVEDILOL [Concomitant]
  11. PREDNISONE TAB [Concomitant]
  12. MABTHERA [Suspect]
     Indication: RHEUMATOID ARTHRITIS
     Dosage: FORM:INFUSION;100MG/10ML
     Route: 042
  13. CALCIUM/VITAMIN D [Concomitant]
     Dosage: DOSE: 500MG + 700MG
  14. CALCIUM [Concomitant]

REACTIONS (10)
  - FIBROMYALGIA [None]
  - ARTHRALGIA [None]
  - HYPOTENSION [None]
  - CARDIAC DISORDER [None]
  - BONE DISORDER [None]
  - OSTEOPENIA [None]
  - URINARY TRACT INFECTION [None]
  - MALAISE [None]
  - MUSCULOSKELETAL PAIN [None]
  - THYROID FUNCTION TEST ABNORMAL [None]
